FAERS Safety Report 7131962-X (Version None)
Quarter: 2010Q4

REPORT INFORMATION
  Report Type: 
  Country: None (occurrence: None)
  Receive Date: 20101124
  Receipt Date: 20101124
  Transmission Date: 20110411
  Serious: Yes (Life-Threatening, Hospitalization, Other)
  Sender: FDA-Public Use
  Company Number: None

PATIENT
  Age: 27 Year
  Sex: Female
  Weight: 81 kg

DRUGS (2)
  1. GIANVI 3MG/0.02MG TABLETS TEVA [Suspect]
     Indication: CONTRACEPTION
     Dosage: 1 TAB 1X DAILY PO
     Route: 048
  2. GIANVI 3MG/0.02MG TABLETS TEVA [Suspect]
     Indication: MENSTRUATION IRREGULAR
     Dosage: 1 TAB 1X DAILY PO
     Route: 048

REACTIONS (1)
  - PULMONARY EMBOLISM [None]
